FAERS Safety Report 4746175-6 (Version None)
Quarter: 2005Q3

REPORT INFORMATION
  Report Type: 
  Country: None (occurrence: None)
  Receive Date: 20050816
  Receipt Date: 20050809
  Transmission Date: 20060218
  Serious: Yes (Hospitalization, Other)
  Sender: FDA-Public Use
  Company Number: USA-2005-0020704

PATIENT
  Age: 36 Year
  Sex: Male
  Weight: 142.4 kg

DRUGS (5)
  1. PALLADONE [Suspect]
     Indication: PAIN
     Dosage: 168 MG, HS, ORAL
     Route: 048
     Dates: start: 20050627
  2. HYDROMORPHONE HYDROCHLORIDE [Suspect]
     Indication: PAIN
  3. AMBIEN [Suspect]
     Indication: INSOMNIA
     Dates: start: 20050630
  4. KEPPRA [Concomitant]
  5. NEURONTIN [Concomitant]

REACTIONS (4)
  - DIABETIC KETOACIDOSIS [None]
  - INSOMNIA [None]
  - LOSS OF CONSCIOUSNESS [None]
  - OVERDOSE [None]
